FAERS Safety Report 21064450 (Version 1)
Quarter: 2022Q3

REPORT INFORMATION
  Report Type: Spontaneous
  Country: US (occurrence: None)
  Receive Date: 20220709
  Receipt Date: 20220709
  Transmission Date: 20221026
  Serious: Yes (Hospitalization)
  Sender: FDA-Public Use
  Company Number: None

PATIENT
  Sex: Male

DRUGS (2)
  1. CISPLATIN [Suspect]
     Active Substance: CISPLATIN
  2. ETOPOSIDE [Concomitant]
     Active Substance: ETOPOSIDE

REACTIONS (3)
  - Chest pain [None]
  - Dyspnoea [None]
  - Electrocardiogram T wave abnormal [None]

NARRATIVE: CASE EVENT DATE: 20220707
